FAERS Safety Report 9535030 (Version 1)
Quarter: 2013Q3

REPORT INFORMATION
  Report Type: Spontaneous
  Country: FR (occurrence: FR)
  Receive Date: 20130918
  Receipt Date: 20130918
  Transmission Date: 20140515
  Serious: Yes (Life-Threatening, Hospitalization)
  Sender: FDA-Public Use
  Company Number: FR-PFIZER INC-2013266243

PATIENT
  Age: 88 Year
  Sex: Female

DRUGS (6)
  1. ALDACTONE [Suspect]
     Indication: HYPERTENSION
     Dosage: UNK
     Route: 048
     Dates: end: 20130731
  2. OLMETEC [Interacting]
     Indication: HYPERTENSION
     Dosage: UNK
     Route: 048
     Dates: end: 20130731
  3. NORSET [Interacting]
     Dosage: UNK
     Route: 048
     Dates: start: 20130627, end: 20130731
  4. INEXIUM [Interacting]
     Dosage: UNK
     Route: 048
     Dates: end: 20130731
  5. MODOPAR [Concomitant]
     Dosage: UNK
     Dates: start: 20130627
  6. ISKEDYL [Concomitant]
     Dosage: UNK
     Dates: start: 20130627

REACTIONS (4)
  - Hyponatraemia [Recovered/Resolved]
  - Hyperkalaemia [Recovering/Resolving]
  - Renal failure acute [Recovered/Resolved]
  - Drug interaction [Recovered/Resolved]
